FAERS Safety Report 8009070-5 (Version None)
Quarter: 2011Q4

REPORT INFORMATION
  Report Type: 
  Country: None (occurrence: None)
  Receive Date: 20111227
  Receipt Date: 20111219
  Transmission Date: 20120403
  Serious: No
  Sender: FDA-Public Use
  Company Number: US-PFIZER INC-2011307485

PATIENT
  Sex: Female

DRUGS (2)
  1. ESTRING [Suspect]
     Indication: VULVOVAGINAL DRYNESS
     Dosage: 2 MG, ONCE IN THREE MONTHS
     Route: 067
     Dates: start: 20111130, end: 20111201
  2. ESTRING [Suspect]
     Indication: MENOPAUSE

REACTIONS (2)
  - DRUG DISPENSING ERROR [None]
  - NASOPHARYNGITIS [None]
